FAERS Safety Report 10362718 (Version 1)
Quarter: 2014Q3

REPORT INFORMATION
  Report Type: Spontaneous
  Country: US (occurrence: None)
  Receive Date: 20140730
  Receipt Date: 20140730
  Transmission Date: 20150326
  Serious: Yes (Hospitalization)
  Sender: FDA-Public Use
  Company Number: A1078426A

PATIENT
  Age: 50 Year
  Sex: Female

DRUGS (16)
  1. MONTELUKAST SODIUM. [Concomitant]
     Active Substance: MONTELUKAST SODIUM
  2. PARACETAMOL [Concomitant]
     Active Substance: ACETAMINOPHEN
  3. ERYTHROMYCIN. [Concomitant]
     Active Substance: ERYTHROMYCIN
  4. PRAVASTATIN [Concomitant]
     Active Substance: PRAVASTATIN\PRAVASTATIN SODIUM
  5. FLUTICASONE+SALMETEROL MULTI DOSE POWDER INHALET (FLUTICASONE+SALMETEROL ) [Suspect]
     Active Substance: FLUTICASONE FUROATE\SALMETEROL XINAFOATE
     Indication: ASTHMA
     Dosage: 1 PUFF (S) TWICE PER DAY / INHALED 21MAY04
     Dates: start: 20040521
  6. DOXYCYCLINE. [Concomitant]
     Active Substance: DOXYCYCLINE
  7. METHYLPREDNISOLONE [Concomitant]
     Active Substance: METHYLPREDNISOLONE
  8. PANTOPRAZOLE [Concomitant]
     Active Substance: PANTOPRAZOLE SODIUM
  9. ZEASORB [Suspect]
     Active Substance: MICONAZOLE NITRATE
     Indication: PRURITUS
     Dosage: UNK / UNK / TOPICAL  MAY14 - MAY14
     Route: 061
     Dates: start: 201405, end: 201405
  10. CETIRIZINE HYDROCHLORIDE. [Concomitant]
     Active Substance: CETIRIZINE HYDROCHLORIDE
  11. FLUTICASONE PROPIONATE. [Concomitant]
     Active Substance: FLUTICASONE PROPIONATE
  12. HYDROXYZINE [Concomitant]
     Active Substance: HYDROXYZINE\HYDROXYZINE HYDROCHLORIDE
  13. PREDNISONE. [Concomitant]
     Active Substance: PREDNISONE
  14. SALBUTAMOL SULPHATE [Concomitant]
     Active Substance: ALBUTEROL SULFATE
  15. MULTIVITAMIN [Concomitant]
     Active Substance: VITAMINS
  16. TRIAMCINOLONE [Concomitant]
     Active Substance: TRIAMCINOLONE

REACTIONS (21)
  - Post procedural infection [None]
  - Arthropod bite [None]
  - Pain [None]
  - Breast pain [None]
  - Bronchitis [None]
  - Anxiety [None]
  - Neck pain [None]
  - Urticaria [None]
  - Musculoskeletal discomfort [None]
  - Acrochordon [None]
  - Pruritus [None]
  - Acquired oesophageal web [None]
  - Rosacea [None]
  - Wound [None]
  - Headache [None]
  - Rash [None]
  - Dermatitis [None]
  - Gallbladder operation [None]
  - Dyspnoea [None]
  - Dizziness [None]
  - Gastrointestinal disorder [None]
